FAERS Safety Report 8180714-0 (Version None)
Quarter: 2012Q1

REPORT INFORMATION
  Report Type: 
  Country: None (occurrence: None)
  Receive Date: 20120302
  Receipt Date: 20120222
  Transmission Date: 20120608
  Serious: Yes (Other)
  Sender: FDA-Public Use
  Company Number: JP-B.I. PHARMACEUTICALS,INC./RIDGEFIELD-2012-EU-01110GD

PATIENT
  Age: 45 Year
  Sex: Female

DRUGS (1)
  1. TELMISARTAN [Suspect]
     Indication: HYPERTENSION
     Dosage: 40 MG

REACTIONS (5)
  - ELECTROCARDIOGRAM QT PROLONGED [None]
  - PRIMARY HYPERALDOSTERONISM [None]
  - CARDIO-RESPIRATORY ARREST [None]
  - VENTRICULAR FIBRILLATION [None]
  - HYPOKALAEMIA [None]
